FAERS Safety Report 23443091 (Version 1)
Quarter: 2024Q1

REPORT INFORMATION
  Report Type: Spontaneous
  Country: US (occurrence: US)
  Receive Date: 20240125
  Receipt Date: 20240125
  Transmission Date: 20240409
  Serious: Yes (Death, Hospitalization, Other)
  Sender: FDA-Public Use
  Company Number: US-BRISTOL-MYERS SQUIBB COMPANY-2024-011239

PATIENT
  Age: 69 Year
  Sex: Male

DRUGS (1)
  1. ELIQUIS [Suspect]
     Active Substance: APIXABAN
     Indication: Product used for unknown indication

REACTIONS (6)
  - COVID-19 [Fatal]
  - Pneumonia [Fatal]
  - Dementia [Unknown]
  - Dementia Alzheimer^s type [Unknown]
  - Colon cancer [Unknown]
  - Pulmonary embolism [Unknown]
